FAERS Safety Report 7793400-3 (Version None)
Quarter: 2011Q4

REPORT INFORMATION
  Report Type: 
  Country: None (occurrence: None)
  Receive Date: 20111003
  Receipt Date: 20110615
  Transmission Date: 20120403
  Serious: No
  Sender: FDA-Public Use
  Company Number: US-BAYER-2011-052583

PATIENT
  Age: 44 Year
  Sex: Female

DRUGS (1)
  1. AVELOX [Suspect]
     Indication: OROPHARYNGEAL PAIN
     Dosage: 400 MG, QD
     Route: 048
     Dates: start: 20110503, end: 20110509

REACTIONS (3)
  - JOINT INSTABILITY [None]
  - MUSCLE SPASMS [None]
  - TIC [None]
